FAERS Safety Report 8578213 (Version 5)
Quarter: 2012Q4

REPORT INFORMATION
  Report Type: Report from Study
  Country: HU (occurrence: HU)
  Receive Date: 20120524
  Receipt Date: 20121128
  Transmission Date: 20130627
  Serious: Yes (Hospitalization)
  Sender: FDA-Public Use
  Company Number: HU-ROCHE-1058610

PATIENT
  Age: 66 Year
  Sex: Female
  Weight: 53 kg

DRUGS (4)
  1. VEMURAFENIB [Suspect]
     Indication: MALIGNANT MELANOMA
     Dosage: last dose prior to sae: 05/Apr/2012
     Route: 048
     Dates: start: 20120313, end: 20120405
  2. VEMURAFENIB [Suspect]
     Dosage: Last dose prior to SAE:12/Apr/2012
     Route: 048
     Dates: start: 20120405, end: 20120412
  3. VEMURAFENIB [Suspect]
     Dosage: last dose prior to sae: 26/Apr/2012
     Route: 048
     Dates: start: 20120412, end: 20120426
  4. VEMURAFENIB [Suspect]
     Dosage: on 04/may/2012, received last dose, permanently discontinued
     Route: 048
     Dates: start: 20120502, end: 20120509

REACTIONS (1)
  - Dermatitis exfoliative [Recovered/Resolved]
